FAERS Safety Report 4587057-2 (Version None)
Quarter: 2005Q1

REPORT INFORMATION
  Report Type: 
  Country: None (occurrence: None)
  Receive Date: 20050218
  Receipt Date: 20050216
  Transmission Date: 20050727
  Serious: Yes (Death)
  Sender: FDA-Public Use
  Company Number: CO-MERCK-0502COL00015

PATIENT
  Age: 79 Year
  Sex: Female
  Weight: 67 kg

DRUGS (2)
  1. HYZAAR [Suspect]
     Indication: HYPERTENSION
     Route: 048
     Dates: start: 20040701
  2. ZOCOR [Concomitant]
     Route: 048
     Dates: start: 20040701

REACTIONS (1)
  - DEATH [None]
